FAERS Safety Report 19452345 (Version 1)
Quarter: 2021Q2

REPORT INFORMATION
  Report Type: Spontaneous
  Country: NL (occurrence: NL)
  Receive Date: 20210623
  Receipt Date: 20210623
  Transmission Date: 20210717
  Serious: Yes (Other)
  Sender: FDA-Public Use
  Company Number: NL-AUROBINDO-AUR-APL-2021-025743

PATIENT
  Sex: Female

DRUGS (5)
  1. LAMITRIGINE AUROBINDO DISPERSIBLE TABLETS 100MG [Suspect]
     Active Substance: LAMOTRIGINE
     Indication: EPILEPSY
     Dosage: 100 MILLIGRAM(2 KEER PER DAG 100MG) TWO TIMES A DAY
     Route: 065
     Dates: start: 2009, end: 20210526
  2. BUTOCONAZOL [Concomitant]
     Indication: PRODUCT USED FOR UNKNOWN INDICATION
     Dosage: 20 MILLIGRAM PER GRAM(CREME VOOR VAGINAAL GEBRUIK)
     Route: 065
  3. SERTRALINE [Concomitant]
     Active Substance: SERTRALINE HYDROCHLORIDE
     Indication: PRODUCT USED FOR UNKNOWN INDICATION
     Dosage: 50 MILLIGRAM
     Route: 065
  4. MACROGOL [Concomitant]
     Active Substance: POLYETHYLENE GLYCOLS
     Indication: PRODUCT USED FOR UNKNOWN INDICATION
     Dosage: UNK(POEDER VOOR DRANK)
     Route: 065
  5. COLECALCIFEROL [Concomitant]
     Active Substance: CHOLECALCIFEROL
     Indication: PRODUCT USED FOR UNKNOWN INDICATION
     Dosage: UNK(CAPSULE 100.000 IE)
     Route: 065

REACTIONS (2)
  - Therapeutic response unexpected [Unknown]
  - Epilepsy [Recovered/Resolved]
